FAERS Safety Report 13040678 (Version 1)
Quarter: 2016Q4

REPORT INFORMATION
  Report Type: Spontaneous
  Country: US (occurrence: US)
  Receive Date: 20161219
  Receipt Date: 20161219
  Transmission Date: 20170207
  Serious: Yes (Other)
  Sender: FDA-Public Use
  Company Number: None

PATIENT
  Age: 83 Year
  Sex: Female
  Weight: 84.6 kg

DRUGS (11)
  1. FUROSEMIDE 40 MG [Suspect]
     Active Substance: FUROSEMIDE
     Indication: HYPERTENSION
     Route: 048
     Dates: start: 20161206, end: 20161219
  2. ATORVASTATIN [Concomitant]
     Active Substance: ATORVASTATIN
  3. ASPIRIN. [Concomitant]
     Active Substance: ASPIRIN
  4. CENTRUM VITAMIN [Concomitant]
  5. AMIODARONE [Concomitant]
     Active Substance: AMIODARONE
  6. ISOSORBIDE MONONITRATE ER [Concomitant]
  7. ELIQUIS [Concomitant]
     Active Substance: APIXABAN
  8. METOPROLOL XL SUCCINATE [Concomitant]
  9. DOCUSATE SODIUM. [Concomitant]
     Active Substance: DOCUSATE SODIUM
  10. SIMETHACONE (GAS-X) [Concomitant]
  11. FUROSEMIDE 40 MG [Suspect]
     Active Substance: FUROSEMIDE
     Indication: FLUID RETENTION
     Route: 048
     Dates: start: 20161206, end: 20161219

REACTIONS (2)
  - Constipation [None]
  - Dizziness [None]

NARRATIVE: CASE EVENT DATE: 20161207
